FAERS Safety Report 9885072 (Version 2)
Quarter: 2014Q1

REPORT INFORMATION
  Report Type: Spontaneous
  Country: US (occurrence: US)
  Receive Date: 20140210
  Receipt Date: 20140225
  Transmission Date: 20141002
  Serious: Yes (Hospitalization)
  Sender: FDA-Public Use
  Company Number: US-JNJFOC-20140202396

PATIENT
  Age: 8 Decade
  Sex: Male
  Weight: 29.94 kg

DRUGS (1)
  1. NUCYNTA IR [Suspect]
     Indication: CANCER PAIN
     Dosage: 1- 2 TABLET EVERY 4 HOURS AS NEEDED
     Route: 048
     Dates: start: 201312

REACTIONS (3)
  - Investigation [Unknown]
  - Pain [Unknown]
  - Drug dose omission [Unknown]
